FAERS Safety Report 13259929 (Version 1)
Quarter: 2017Q1

REPORT INFORMATION
  Report Type: Spontaneous
  Country: US (occurrence: US)
  Receive Date: 20170222
  Receipt Date: 20170222
  Transmission Date: 20170428
  Serious: No
  Sender: FDA-Public Use
  Company Number: US-IGSA-GBI004956

PATIENT
  Age: 38 Year
  Sex: Female

DRUGS (2)
  1. ALBUTEIN [Suspect]
     Active Substance: ALBUMIN HUMAN
     Indication: ANTIBODY TEST
     Route: 042
     Dates: start: 20161206
  2. ALBUTEIN [Suspect]
     Active Substance: ALBUMIN HUMAN
     Indication: ANTIBODY TEST
     Route: 042
     Dates: start: 20161205

REACTIONS (3)
  - Vomiting [Unknown]
  - Nausea [Unknown]
  - Blood pressure decreased [Unknown]

NARRATIVE: CASE EVENT DATE: 20161205
